FAERS Safety Report 5135090-4 (Version None)
Quarter: 2006Q4

REPORT INFORMATION
  Report Type: 
  Country: None (occurrence: None)
  Receive Date: 20060831
  Receipt Date: 20060613
  Transmission Date: 20070319
  Serious: No
  Sender: FDA-Public Use
  Company Number: 2006-BP-04568BP

PATIENT
  Sex: Female

DRUGS (18)
  1. SPIRIVA [Suspect]
     Indication: ASTHMA
     Dosage: 18 MCG (18 MCG),IH
     Route: 055
     Dates: start: 20040830, end: 20040831
  2. SPIRIVA [Suspect]
     Indication: CHRONIC OBSTRUCTIVE PULMONARY DISEASE
     Dosage: 18 MCG (18 MCG),IH
     Route: 055
     Dates: start: 20040830, end: 20040831
  3. PREMARIN [Concomitant]
  4. TRAZODONE HCL [Concomitant]
  5. KLONOPIN [Concomitant]
  6. IBUPROFEN [Concomitant]
  7. LEVOTHYROXINE SODIUM [Concomitant]
  8. ASPIRIN [Concomitant]
  9. LASIX [Concomitant]
  10. DOCUSATE (DOCUSATE) [Concomitant]
  11. LAMICTAL [Concomitant]
  12. CENTRUM SILVER (CENTRUM SILVER) [Concomitant]
  13. FIORICET (AXOTAL /00727001/) [Concomitant]
  14. CALCIUM WITH D [Concomitant]
  15. FLEXERIL [Concomitant]
  16. ALBUTEROL [Concomitant]
  17. QVAR (BECLOMETASONE DIPROPIONATE) [Concomitant]
  18. ATROVENT [Concomitant]

REACTIONS (1)
  - HEADACHE [None]
